FAERS Safety Report 25527072 (Version 2)
Quarter: 2025Q3

REPORT INFORMATION
  Report Type: Spontaneous
  Country: GB (occurrence: GB)
  Receive Date: 20250708
  Receipt Date: 20250814
  Transmission Date: 20251021
  Serious: Yes (Other)
  Sender: VIIV
  Company Number: None

PATIENT
  Age: 43 Year
  Sex: Male
  Weight: 94 kg

DRUGS (5)
  1. CABOTEGRAVIR [Suspect]
     Active Substance: CABOTEGRAVIR
     Indication: HIV infection
     Route: 065
  2. CABOTEGRAVIR [Suspect]
     Active Substance: CABOTEGRAVIR
     Route: 065
  3. CABOTEGRAVIR [Suspect]
     Active Substance: CABOTEGRAVIR
  4. RILPIVIRINE [Concomitant]
     Active Substance: RILPIVIRINE
     Indication: Antiretroviral therapy
     Route: 065
  5. RILPIVIRINE [Concomitant]
     Active Substance: RILPIVIRINE
     Route: 065

REACTIONS (3)
  - Haematoma [Recovered/Resolved]
  - Tachycardia [Unknown]
  - Chills [Unknown]

NARRATIVE: CASE EVENT DATE: 20250601
